FAERS Safety Report 9173793 (Version 1)
Quarter: 2013Q1

REPORT INFORMATION
  Report Type: Spontaneous
  Country: US (occurrence: None)
  Receive Date: 20130318
  Receipt Date: 20130318
  Transmission Date: 20140127
  Serious: Yes (Other)
  Sender: FDA-Public Use
  Company Number: 2012-014

PATIENT
  Sex: Male

DRUGS (1)
  1. CLOBETASOL PROPIONATE RX 0.05% 2P1 [Suspect]
     Dates: start: 20120130

REACTIONS (1)
  - Burns third degree [None]
